FAERS Safety Report 6266977-7 (Version None)
Quarter: 2009Q3

REPORT INFORMATION
  Report Type: 
  Country: None (occurrence: None)
  Receive Date: 20090714
  Receipt Date: 20081106
  Transmission Date: 20100115
  Serious: No
  Sender: FDA-Public Use
  Company Number: DE-AVENTIS-200812358DE

PATIENT
  Age: 60 Year
  Sex: Female
  Weight: 72 kg

DRUGS (10)
  1. ENOXAPARIN SODIUM [Suspect]
     Route: 058
     Dates: start: 20070526, end: 20070707
  2. ENOXAPARIN SODIUM [Suspect]
     Route: 058
     Dates: start: 20070725, end: 20070801
  3. VOLTAREN [Concomitant]
     Indication: PAIN
     Route: 048
     Dates: start: 20070501
  4. NEXIUM [Concomitant]
     Indication: PROPHYLAXIS
     Route: 048
     Dates: start: 20070501
  5. TAVANIC [Concomitant]
     Indication: ANTIBIOTIC THERAPY
     Route: 048
     Dates: start: 20080701
  6. HOMEOPATIC PREPARATION [Concomitant]
     Indication: PROMOTION OF WOUND HEALING
     Route: 048
     Dates: start: 20070613
  7. TRAUMEEL S                         /01124601/ [Concomitant]
     Indication: PROMOTION OF WOUND HEALING
     Dosage: DOSE: 3X1
     Route: 048
     Dates: start: 20070613
  8. HOMEOPATIC PREPARATION [Concomitant]
     Dosage: DOSE: 2X10
     Route: 048
     Dates: start: 20070712
  9. ACETAMINOPHEN [Concomitant]
     Route: 048
  10. HOMEOPATIC PREPARATION [Concomitant]
     Dosage: DOSE: 3X40
     Route: 048
     Dates: start: 20070917

REACTIONS (4)
  - ALOPECIA [None]
  - HAEMORRHAGE [None]
  - PERIODONTITIS [None]
  - TOOTH DISORDER [None]
